FAERS Safety Report 15804291 (Version 1)
Quarter: 2019Q1

REPORT INFORMATION
  Report Type: Spontaneous
  Country: US (occurrence: US)
  Receive Date: 20190109
  Receipt Date: 20190109
  Transmission Date: 20190417
  Serious: No
  Sender: FDA-Public Use
  Company Number: US-BAYER-2019-003742

PATIENT

DRUGS (1)
  1. ALIQOPA [Suspect]
     Active Substance: COPANLISIB
     Dosage: UNK
     Dates: start: 20181220

REACTIONS (3)
  - Extravasation [None]
  - Injection site erythema [Not Recovered/Not Resolved]
  - Vessel puncture site pain [Not Recovered/Not Resolved]

NARRATIVE: CASE EVENT DATE: 20181220
